FAERS Safety Report 21346950 (Version 1)
Quarter: 2022Q3

REPORT INFORMATION
  Report Type: Report from Study
  Country: FR (occurrence: FR)
  Receive Date: 20220918
  Receipt Date: 20220918
  Transmission Date: 20221026
  Serious: Yes (Other)
  Sender: FDA-Public Use
  Company Number: FR-JNJFOC-20220917159

PATIENT
  Sex: Male

DRUGS (3)
  1. ABIRATERONE ACETATE [Suspect]
     Active Substance: ABIRATERONE ACETATE
     Indication: Prostate cancer metastatic
     Route: 048
  2. OLAPARIB [Suspect]
     Active Substance: OLAPARIB
     Indication: Prostate cancer metastatic
     Route: 065
  3. PREDNISONE [Suspect]
     Active Substance: PREDNISONE
     Indication: Prostate cancer metastatic
     Route: 065

REACTIONS (6)
  - Cardiac failure [Unknown]
  - Anaemia [Unknown]
  - Pulmonary embolism [Unknown]
  - Embolism venous [Unknown]
  - Embolism arterial [Unknown]
  - COVID-19 [Unknown]
